FAERS Safety Report 6302796-0 (Version None)
Quarter: 2009Q3

REPORT INFORMATION
  Report Type: 
  Country: None (occurrence: None)
  Receive Date: 20090810
  Receipt Date: 20090501
  Transmission Date: 20100115
  Serious: No
  Sender: FDA-Public Use
  Company Number: A0783281A

PATIENT
  Age: 33 Year
  Sex: Female

DRUGS (1)
  1. ALTABAX [Suspect]
     Indication: FUNGAL SKIN INFECTION

REACTIONS (3)
  - ADVERSE REACTION [None]
  - PRURITUS [None]
  - URTICARIA [None]
